FAERS Safety Report 14628305 (Version 1)
Quarter: 2018Q1

REPORT INFORMATION
  Report Type: Spontaneous
  Country: US (occurrence: US)
  Receive Date: 20180312
  Receipt Date: 20180312
  Transmission Date: 20180509
  Serious: No
  Sender: FDA-Public Use
  Company Number: US-ALLERGAN-1753000US

PATIENT
  Age: 75 Year
  Sex: Female
  Weight: 63.49 kg

DRUGS (3)
  1. ESTRACE [Suspect]
     Active Substance: ESTRADIOL
     Indication: ATROPHIC VULVOVAGINITIS
  2. LEVOTHYROXINE. [Concomitant]
     Active Substance: LEVOTHYROXINE
     Indication: THYROID DISORDER
     Dosage: 75 MG, QD
     Route: 048
  3. ESTRACE [Suspect]
     Active Substance: ESTRADIOL
     Indication: FUNCTIONAL GASTROINTESTINAL DISORDER
     Dosage: 1 G, QD
     Route: 067
     Dates: start: 20170907, end: 20170913

REACTIONS (4)
  - Off label use [Unknown]
  - Breast tenderness [Not Recovered/Not Resolved]
  - Breast pain [Unknown]
  - Nipple pain [Not Recovered/Not Resolved]

NARRATIVE: CASE EVENT DATE: 20170909
